FAERS Safety Report 11323338 (Version 1)
Quarter: 2015Q3

REPORT INFORMATION
  Report Type: Spontaneous
  Country: US (occurrence: US)
  Receive Date: 20150730
  Receipt Date: 20150730
  Transmission Date: 20151125
  Serious: No
  Sender: FDA-Public Use
  Company Number: US-MYLANLABS-2015M1012167

PATIENT
  Age: 72 Year
  Sex: Female

DRUGS (1)
  1. LEVOTHYROXINE SODIUM TABLETS, USP [Suspect]
     Active Substance: LEVOTHYROXINE SODIUM
     Indication: THYROIDECTOMY
     Dosage: 112 ?G, QD
     Route: 048
     Dates: start: 201501, end: 201503

REACTIONS (3)
  - Palpitations [Recovered/Resolved]
  - Hypertension [Recovering/Resolving]
  - Drug screen negative [Recovered/Resolved]

NARRATIVE: CASE EVENT DATE: 201503
